FAERS Safety Report 23132850 (Version 4)
Quarter: 2023Q4

REPORT INFORMATION
  Report Type: Spontaneous
  Country: US (occurrence: US)
  Receive Date: 20231101
  Receipt Date: 20231205
  Transmission Date: 20240110
  Serious: Yes (Death, Other)
  Sender: FDA-Public Use
  Company Number: US-Ipsen Biopharmaceuticals, Inc.-2023-24820

PATIENT
  Age: 11 Year
  Sex: Female
  Weight: 53.8 kg

DRUGS (21)
  1. TAZVERIK [Suspect]
     Active Substance: TAZEMETOSTAT HYDROBROMIDE
     Indication: Soft tissue sarcoma
     Dosage: 800 MG TWICE DAILY
     Route: 048
  2. AMOXICILLIN [Concomitant]
     Active Substance: AMOXICILLIN
  3. BENADRYL [Concomitant]
     Active Substance: DIPHENHYDRAMINE HYDROCHLORIDE
  4. CLOTRIMAZOLE [Concomitant]
     Active Substance: CLOTRIMAZOLE
  5. CVS PHARMACY IBUPROFEN [Concomitant]
     Active Substance: IBUPROFEN
  6. DEXAMETHASONE [Concomitant]
     Active Substance: DEXAMETHASONE
  7. DILAUDID [Concomitant]
     Active Substance: HYDROMORPHONE HYDROCHLORIDE
  8. FAMOTIDINE [Concomitant]
     Active Substance: FAMOTIDINE
  9. FENTANYL [Concomitant]
     Active Substance: FENTANYL\FENTANYL CITRATE
  10. GABAPENTIN [Concomitant]
     Active Substance: GABAPENTIN
  11. HYDROCORTISONE [Concomitant]
     Active Substance: HYDROCORTISONE
  12. LASIX [Concomitant]
     Active Substance: FUROSEMIDE
  13. LIDOCAINE- PRILOCAINE [Concomitant]
  14. LORAZEPAM [Concomitant]
     Active Substance: LORAZEPAM
  15. ONDANSETRON [Concomitant]
     Active Substance: ONDANSETRON
  16. OXYCODONE [Concomitant]
     Active Substance: OXYCODONE
  17. HIGH DENSITY POLYETHYLENE [Concomitant]
     Active Substance: HIGH DENSITY POLYETHYLENE
  18. SUCRALFATE [Concomitant]
     Active Substance: SUCRALFATE
  19. SULFAMETHOXAZOLE- TRIMETHOPRIM [Concomitant]
  20. TYLENOL 8 HR ARTHRITIS PAIN [Concomitant]
     Active Substance: ACETAMINOPHEN
  21. MS CONTIN [Concomitant]
     Active Substance: MORPHINE SULFATE

REACTIONS (4)
  - Death [Fatal]
  - Terminal state [Not Recovered/Not Resolved]
  - Fluid retention [Recovering/Resolving]
  - Off label use [Unknown]
